FAERS Safety Report 8809180 (Version 1)
Quarter: 2012Q4

REPORT INFORMATION
  Report Type: 
  Country: NO (occurrence: None)
  Receive Date: 20120920
  Receipt Date: 20120920
  Transmission Date: 20130627
  Serious: Yes (Death)
  Sender: FDA-Public Use
  Company Number: COAC20120006

PATIENT
  Age: 55 Year
  Sex: Male

DRUGS (6)
  1. CODEINE PHOSPHATE / ACETAMINOPHEN [Suspect]
  2. MORPHINE SULFATE ER [Suspect]
  3. DIAZEPAM [Concomitant]
  4. ETHYLMORPHINE [Concomitant]
  5. OXAZEPAM [Concomitant]
  6. CARBAMAZEPINE [Concomitant]

REACTIONS (3)
  - Arteriosclerosis coronary artery [None]
  - Toxicity to various agents [None]
  - Cardiac failure [None]
